FAERS Safety Report 10629028 (Version 1)
Quarter: 2014Q4

REPORT INFORMATION
  Report Type: Spontaneous
  Country: US (occurrence: US)
  Receive Date: 20141205
  Receipt Date: 20141205
  Transmission Date: 20150529
  Serious: No
  Sender: FDA-Public Use
  Company Number: US-BRISTOL-MYERS SQUIBB COMPANY-21633839

PATIENT
  Age: 60 Year
  Sex: Female
  Weight: 60.77 kg

DRUGS (2)
  1. KENALOG-10 [Suspect]
     Active Substance: TRIAMCINOLONE ACETONIDE
     Indication: ACNE CYSTIC
     Route: 023
     Dates: start: 20140915
  2. BUPROPION [Concomitant]
     Active Substance: BUPROPION

REACTIONS (2)
  - Atrophy [Unknown]
  - Off label use [Unknown]

NARRATIVE: CASE EVENT DATE: 20140915
